FAERS Safety Report 17975167 (Version 2)
Quarter: 2020Q3

REPORT INFORMATION
  Report Type: Report from Study
  Country: US (occurrence: US)
  Receive Date: 20200702
  Receipt Date: 20200713
  Transmission Date: 20201103
  Serious: Yes (Hospitalization, Other)
  Sender: FDA-Public Use
  Company Number: US-GILEAD-2020-0461899

PATIENT
  Age: 69 Year
  Sex: Female
  Weight: 102.95 kg

DRUGS (14)
  1. LEVOTHYROXINE. [Concomitant]
     Active Substance: LEVOTHYROXINE
  2. AZELASTINE. [Concomitant]
     Active Substance: AZELASTINE HYDROCHLORIDE
  3. LISINOPRIL. [Concomitant]
     Active Substance: LISINOPRIL
  4. TORSEMIDE. [Concomitant]
     Active Substance: TORSEMIDE
  5. CHOLECALCIFEROL [Concomitant]
     Active Substance: CHOLECALCIFEROL
  6. METHADONE [Concomitant]
     Active Substance: METHADONE HYDROCHLORIDE
  7. DILTIAZEM. [Concomitant]
     Active Substance: DILTIAZEM
  8. UPTRAVI [Concomitant]
     Active Substance: SELEXIPAG
  9. PREMARIN [Concomitant]
     Active Substance: ESTROGENS, CONJUGATED
  10. OXYCODONE [Concomitant]
     Active Substance: OXYCODONE
  11. TADALAFIL. [Concomitant]
     Active Substance: TADALAFIL
     Indication: PULMONARY HYPERTENSION
     Dosage: 20 MG, QHS
     Route: 048
  12. ATORVASTATIN [Concomitant]
     Active Substance: ATORVASTATIN
  13. FLUNISOLIDE. [Concomitant]
     Active Substance: FLUNISOLIDE
  14. AMBRISENTAN [Suspect]
     Active Substance: AMBRISENTAN
     Indication: PULMONARY ARTERIAL HYPERTENSION
     Dosage: 10 MG, QD
     Route: 048
     Dates: start: 20200421

REACTIONS (9)
  - Skin induration [Not Recovered/Not Resolved]
  - Headache [Recovered/Resolved]
  - Pneumonia [Unknown]
  - Pain in extremity [Not Recovered/Not Resolved]
  - Induration [Not Recovered/Not Resolved]
  - Pulmonary valve stenosis [Unknown]
  - Pulmonary arterial hypertension [Unknown]
  - Visual impairment [Not Recovered/Not Resolved]
  - Flushing [Not Recovered/Not Resolved]

NARRATIVE: CASE EVENT DATE: 202004
